FAERS Safety Report 24076005 (Version 1)
Quarter: 2024Q3

REPORT INFORMATION
  Report Type: Spontaneous
  Country: US (occurrence: US)
  Receive Date: 20240710
  Receipt Date: 20240710
  Transmission Date: 20241017
  Serious: Yes (Hospitalization, Other)
  Sender: FRESENIUS MEDICAL CARE
  Company Number: US-FMCRTG-FMC-2406-000728

PATIENT
  Age: 35 Year
  Sex: Male
  Weight: 102 kg

DRUGS (1)
  1. DELFLEX [Suspect]
     Active Substance: CALCIUM CHLORIDE\DEXTROSE\MAGNESIUM CHLORIDE\SODIUM CHLORIDE\SODIUM LACTATE
     Indication: End stage renal disease
     Dosage: 4 FILLS OF 2200 ML AND A LAST FILL OF 2000 TOTAL VOLUME 10,800 ML, HE DOES 2 HOUR DWELLS
     Route: 033

REACTIONS (1)
  - Peritonitis bacterial [Unknown]
